FAERS Safety Report 13776603 (Version 4)
Quarter: 2020Q3

REPORT INFORMATION
  Report Type: Spontaneous
  Country: US (occurrence: US)
  Receive Date: 20170721
  Receipt Date: 20200916
  Transmission Date: 20201102
  Serious: Yes (Other)
  Sender: FDA-Public Use
  Company Number: US-PFIZER INC-2017312234

PATIENT
  Age: 59 Year
  Sex: Female

DRUGS (1)
  1. METHOTREXATE SODIUM. [Suspect]
     Active Substance: METHOTREXATE SODIUM
     Indication: RHEUMATOID ARTHRITIS
     Dosage: 2.5 MG, UNK
     Dates: start: 201507, end: 201509

REACTIONS (7)
  - Pharyngeal swelling [Unknown]
  - Dyspnoea [Unknown]
  - Pruritus [Unknown]
  - Drug hypersensitivity [Unknown]
  - Lacrimation increased [Unknown]
  - Bronchospasm [Unknown]
  - Rash [Unknown]
